FAERS Safety Report 7651565-8 (Version None)
Quarter: 2011Q3

REPORT INFORMATION
  Report Type: 
  Country: None (occurrence: None)
  Receive Date: 20110802
  Receipt Date: 20110720
  Transmission Date: 20111222
  Serious: Yes (Hospitalization, Other)
  Sender: FDA-Public Use
  Company Number: US-ASTRAZENECA-2008UW08097

PATIENT
  Age: 43 Year
  Sex: Male
  Weight: 55.8 kg

DRUGS (11)
  1. EFFEXOR [Concomitant]
     Dates: start: 20020101, end: 20030101
  2. EFFEXOR [Concomitant]
     Dates: start: 20020101, end: 20030101
  3. REMERON [Concomitant]
     Dates: start: 20020101, end: 20030101
  4. TRAZODONE HCL [Concomitant]
     Dates: start: 20010101, end: 20020101
  5. ABILIFY [Concomitant]
     Dates: start: 20030101, end: 20040101
  6. PAXIL [Concomitant]
     Dates: start: 20010101
  7. GABAPENTIN [Concomitant]
     Route: 048
     Dates: start: 20050323
  8. FLUOXETINE [Concomitant]
     Route: 048
     Dates: start: 20050519
  9. SEROQUEL [Suspect]
     Indication: BIPOLAR DISORDER
     Route: 048
     Dates: start: 20040401, end: 20050401
  10. SEROQUEL [Suspect]
     Route: 048
     Dates: start: 20050323, end: 20050401
  11. LITHIUM CARBONATE [Concomitant]
     Dates: start: 20050323, end: 20070101

REACTIONS (5)
  - GASTROINTESTINAL DISORDER [None]
  - DIABETIC KETOACIDOSIS [None]
  - DIABETES MELLITUS [None]
  - IMPAIRED GASTRIC EMPTYING [None]
  - DIABETIC GASTROPATHY [None]
